FAERS Safety Report 13884977 (Version 1)
Quarter: 2017Q3

REPORT INFORMATION
  Report Type: Spontaneous
  Country: US (occurrence: US)
  Receive Date: 20170816
  Receipt Date: 20170816
  Transmission Date: 20171127
  Serious: Yes (Disabling)
  Sender: FDA-Public Use
  Company Number: None

PATIENT
  Age: 57 Year
  Sex: Female
  Weight: 94.5 kg

DRUGS (5)
  1. SYMBICORT [Suspect]
     Active Substance: BUDESONIDE\FORMOTEROL FUMARATE DIHYDRATE
     Indication: CHRONIC OBSTRUCTIVE PULMONARY DISEASE
     Dosage: ?          OTHER STRENGTH:120 INHALATIONS;?
     Route: 055
     Dates: start: 20160928, end: 20170729
  2. PROTONIX [Concomitant]
     Active Substance: PANTOPRAZOLE SODIUM
  3. WOMEN^S VITAMIN DIGESTIVE HEALTH PROBIOTIC [Concomitant]
  4. IRON [Concomitant]
     Active Substance: IRON
  5. SUCRALFATE. [Concomitant]
     Active Substance: SUCRALFATE

REACTIONS (5)
  - Vision blurred [None]
  - Insomnia [None]
  - Muscle spasms [None]
  - Candida infection [None]
  - Stomatitis [None]

NARRATIVE: CASE EVENT DATE: 20170201
